FAERS Safety Report 10261606 (Version 1)
Quarter: 2014Q2

REPORT INFORMATION
  Report Type: Spontaneous
  Country: DK (occurrence: FR)
  Receive Date: 20140626
  Receipt Date: 20140626
  Transmission Date: 20141212
  Serious: Yes (Hospitalization)
  Sender: FDA-Public Use
  Company Number: FR-FRI-1000068479

PATIENT
  Age: 81 Year
  Sex: Female

DRUGS (14)
  1. ESCITALOPRAM [Suspect]
     Dosage: 1.5 DF
     Route: 048
  2. CONTRAMAL [Suspect]
     Dosage: 3 DF
     Route: 048
     Dates: end: 20130519
  3. LAROXYL [Suspect]
     Dosage: 18 GTT
     Route: 048
     Dates: end: 20130519
  4. LYRICA [Suspect]
     Dosage: 2 DF
     Route: 048
  5. SERESTA [Suspect]
     Dosage: 1.5 DF
     Route: 048
     Dates: end: 20130519
  6. STILNOX [Suspect]
     Dosage: 1.5 DF
     Route: 048
     Dates: end: 20130519
  7. TRANSIPEG [Concomitant]
  8. DOLIPRANE [Concomitant]
  9. KARDEGIC [Concomitant]
  10. MODOPAR [Concomitant]
  11. MODOPAR LP [Concomitant]
  12. OLMETEC [Concomitant]
  13. OSTRAM [Concomitant]
  14. XAGRID [Concomitant]

REACTIONS (4)
  - Depressed level of consciousness [Unknown]
  - Somnolence [Unknown]
  - Disturbance in attention [Unknown]
  - Off label use [Unknown]
